FAERS Safety Report 9230370 (Version 1)
Quarter: 2013Q1

REPORT INFORMATION
  Report Type: Spontaneous
  Country: US (occurrence: None)
  Receive Date: 20121019
  Receipt Date: 20121019
  Transmission Date: 20140127
  Serious: Yes (Other)
  Sender: FDA-Public Use
  Company Number: 2012P1046808

PATIENT
  Age: 80 Year
  Sex: Male
  Weight: 77.11 kg

DRUGS (9)
  1. FENTANYL PATCH [Suspect]
     Indication: SPINAL FRACTURE
     Dosage: 1 PATCH 13D TDER
     Dates: start: 20120624, end: 20120628
  2. AMLODIPINE [Concomitant]
  3. ASPIRIN [Concomitant]
  4. ERTAPENEM [Concomitant]
  5. GLIMEPIRIDE [Concomitant]
  6. METOPROLOL [Concomitant]
  7. OMEPRAZOLE [Concomitant]
  8. PRAVASTATIN [Concomitant]
  9. SODIUM BICARBONATE [Concomitant]

REACTIONS (4)
  - Hallucination [None]
  - Speech disorder [None]
  - Somnolence [None]
  - Overdose [None]
